FAERS Safety Report 5453540-0 (Version None)
Quarter: 2007Q3

REPORT INFORMATION
  Report Type: 
  Country: None (occurrence: None)
  Receive Date: 20070913
  Receipt Date: 20070907
  Transmission Date: 20080115
  Serious: Yes (Hospitalization)
  Sender: FDA-Public Use
  Company Number: 2007-04122

PATIENT
  Age: 57 Year
  Sex: Male

DRUGS (2)
  1. GABAPENTIN [Suspect]
     Indication: ESSENTIAL TREMOR
     Dosage: 900 MG, DAILY,
     Route: 048
     Dates: end: 20070101
  2. GABAPENTIN [Suspect]
     Indication: ESSENTIAL TREMOR
     Dosage: 900 MG, DAILY,
     Route: 048
     Dates: start: 20070101

REACTIONS (1)
  - STATUS EPILEPTICUS [None]
